FAERS Safety Report 6386353-6 (Version None)
Quarter: 2009Q3

REPORT INFORMATION
  Report Type: 
  Country: None (occurrence: None)
  Receive Date: 20090930
  Receipt Date: 20090930
  Transmission Date: 20100115
  Serious: Yes (Death)
  Sender: FDA-Public Use
  Company Number: None

PATIENT
  Age: 39 Year
  Sex: Male
  Weight: 88.4514 kg

DRUGS (2)
  1. WELLBUTRIN [Suspect]
     Indication: DEPRESSION
     Dosage: WELLBUTRIN 150 MG TWICE DAILY PO
     Route: 048
  2. KLONOPIN [Suspect]
     Indication: BACK PAIN
     Dosage: KLONOPIN 1 MG 2-3 DAILY PO
     Route: 048

REACTIONS (2)
  - ACCIDENTAL OVERDOSE [None]
  - DRUG INTERACTION [None]
